FAERS Safety Report 5017657-7 (Version None)
Quarter: 2006Q2

REPORT INFORMATION
  Report Type: 
  Country: None (occurrence: None)
  Receive Date: 20060605
  Receipt Date: 20060524
  Transmission Date: 20061013
  Serious: Yes (Hospitalization)
  Sender: FDA-Public Use
  Company Number: US-ROCHE-449480

PATIENT
  Sex: Male

DRUGS (1)
  1. FUZEON [Suspect]
     Indication: DRUG USE FOR UNKNOWN INDICATION
     Dosage: ROUTE REPORTED AS INJECTABLE. PATIENT RECEIVED SURGUARD2 SYRINGES AFTER HOSPITALISATION.
     Route: 050
     Dates: start: 20030415

REACTIONS (2)
  - ANKLE FRACTURE [None]
  - FALL [None]
